FAERS Safety Report 19599585 (Version 1)
Quarter: 2021Q3

REPORT INFORMATION
  Report Type: Spontaneous
  Country: US (occurrence: US)
  Receive Date: 20210722
  Receipt Date: 20210722
  Transmission Date: 20211014
  Serious: Yes (Hospitalization, Other)
  Sender: FDA-Public Use
  Company Number: US-PFIZER INC-2021862960

PATIENT
  Age: 24 Year
  Sex: Female

DRUGS (4)
  1. XELJANZ XR [Suspect]
     Active Substance: TOFACITINIB CITRATE
     Dosage: 10MG/TAKE 1 TABLET (10 MG) BY MOUTH TWICE A DAY FOR 8 WEEKS THEN START 5 MG DOSE
  2. METRONIDAZOLE. [Concomitant]
     Active Substance: METRONIDAZOLE
  3. ZOLOFT [Concomitant]
     Active Substance: SERTRALINE HYDROCHLORIDE
  4. MESALAMINE DELAYED RELEASE [Concomitant]
     Active Substance: MESALAMINE

REACTIONS (2)
  - Appendicitis [Unknown]
  - Night sweats [Unknown]

NARRATIVE: CASE EVENT DATE: 20210704
